FAERS Safety Report 9469737 (Version 2)
Quarter: 2013Q4

REPORT INFORMATION
  Report Type: Report from Study
  Country: US (occurrence: US)
  Receive Date: 20130822
  Receipt Date: 20131011
  Transmission Date: 20140711
  Serious: Yes (Hospitalization, Other)
  Sender: FDA-Public Use
  Company Number: PHEH2013US017687

PATIENT
  Sex: Female
  Weight: 87.53 kg

DRUGS (6)
  1. ZOMETA [Suspect]
     Indication: HEPATIC CANCER
     Dosage: UNK UKN, UNK
     Route: 042
     Dates: start: 201302
  2. ZOMETA [Suspect]
     Indication: BONE DISORDER
  3. ATIVAN [Concomitant]
     Dosage: UNK UKN, UNK
  4. AROMASIN [Concomitant]
     Dosage: UNK UKN, UNK
  5. AFINITOR [Concomitant]
     Dosage: UNK UKN, UNK
  6. MULTIVIT//VITAMINS NOS [Concomitant]
     Dosage: UNK UKN, UNK

REACTIONS (7)
  - Central nervous system lesion [Unknown]
  - Metastases to central nervous system [Unknown]
  - Headache [Unknown]
  - Flushing [Recovered/Resolved]
  - Alopecia [Unknown]
  - Rash [Recovered/Resolved]
  - Dysgeusia [Unknown]
